FAERS Safety Report 15229004 (Version 1)
Quarter: 2018Q3

REPORT INFORMATION
  Report Type: Report from Study
  Country: US (occurrence: US)
  Receive Date: 20180801
  Receipt Date: 20180801
  Transmission Date: 20181010
  Serious: No
  Sender: FDA-Public Use
  Company Number: US-AMGEN-USASL2018008105

PATIENT
  Sex: Female

DRUGS (4)
  1. NPLATE [Suspect]
     Active Substance: ROMIPLOSTIM
     Dosage: 500 MUG, QWK
     Route: 058
  2. PREDNISONE. [Concomitant]
     Active Substance: PREDNISONE
  3. NPLATE [Suspect]
     Active Substance: ROMIPLOSTIM
     Indication: IMMUNE THROMBOCYTOPENIC PURPURA
     Dosage: 800 MUG, QWK
     Route: 058
     Dates: start: 2016
  4. AZATHIOPRINE. [Concomitant]
     Active Substance: AZATHIOPRINE

REACTIONS (6)
  - Drug effect variable [Not Recovered/Not Resolved]
  - Burning sensation [Recovering/Resolving]
  - Pain [Unknown]
  - Headache [Recovering/Resolving]
  - Pain in extremity [Unknown]
  - Musculoskeletal pain [Unknown]
